FAERS Safety Report 6354489-1 (Version None)
Quarter: 2009Q3

REPORT INFORMATION
  Report Type: 
  Country: None (occurrence: None)
  Receive Date: 20090914
  Receipt Date: 20090402
  Transmission Date: 20100115
  Serious: Yes (Other)
  Sender: FDA-Public Use
  Company Number: PHEH2009US02353

PATIENT
  Sex: Female

DRUGS (1)
  1. FEMARA [Suspect]
     Indication: BREAST CANCER
     Dosage: 2.5 MG, QD
     Dates: start: 20040201

REACTIONS (7)
  - ARTHROPATHY [None]
  - CONDITION AGGRAVATED [None]
  - JOINT SWELLING [None]
  - LIMB INJURY [None]
  - METASTASES TO LYMPH NODES [None]
  - OSTEOARTHRITIS [None]
  - TRAUMATIC ARTHRITIS [None]
